FAERS Safety Report 9485832 (Version 1)
Quarter: 2013Q3

REPORT INFORMATION
  Report Type: Spontaneous
  Country: US (occurrence: None)
  Receive Date: 20130827
  Receipt Date: 20130827
  Transmission Date: 20140515
  Serious: Yes (Hospitalization)
  Sender: FDA-Public Use
  Company Number: None

PATIENT
  Age: 53 Year
  Sex: Male
  Weight: 91.8 kg

DRUGS (1)
  1. IOVERSOL [Suspect]
     Dosage: 320 MG  ONCE  IV
     Route: 042
     Dates: start: 20130405, end: 20130405

REACTIONS (1)
  - Contrast media allergy [None]
